FAERS Safety Report 8966699 (Version 1)
Quarter: 2012Q4

REPORT INFORMATION
  Report Type: Report from Study
  Country: CA (occurrence: CA)
  Receive Date: 20121217
  Receipt Date: 20121217
  Transmission Date: 20130627
  Serious: Yes (Other)
  Sender: FDA-Public Use
  Company Number: CA-JNJFOC-20121203878

PATIENT
  Sex: Male
  Weight: 76 kg

DRUGS (3)
  1. REMICADE [Suspect]
     Indication: ANKYLOSING SPONDYLITIS
     Route: 042
     Dates: start: 20110216
  2. OXYCONTIN [Concomitant]
     Indication: IRITIS
     Route: 065
  3. NAPROXEN [Concomitant]
     Indication: IRITIS
     Route: 065

REACTIONS (1)
  - Cyst [Unknown]
